FAERS Safety Report 4319067-4 (Version None)
Quarter: 2004Q1

REPORT INFORMATION
  Report Type: 
  Country: None (occurrence: None)
  Receive Date: 20040316
  Receipt Date: 20040304
  Transmission Date: 20041129
  Serious: Yes (Hospitalization)
  Sender: FDA-Public Use
  Company Number: NSADSS2002006796

PATIENT
  Age: 31 Year
  Sex: Male
  Weight: 84 kg

DRUGS (3)
  1. REMICADE [Suspect]
     Indication: PSORIATIC ARTHROPATHY
     Dosage: 5 MG/KG, 1 IN 1 DAY, INTRAVENOUS DRIP
     Route: 041
     Dates: start: 20011019
  2. METHOTREXATE [Concomitant]
  3. ACFOL (FOLIC ACID) [Concomitant]

REACTIONS (1)
  - APPENDICITIS [None]
